FAERS Safety Report 5764117-1 (Version None)
Quarter: 2008Q2

REPORT INFORMATION
  Report Type: 
  Country: None (occurrence: None)
  Receive Date: 20080604
  Receipt Date: 20080523
  Transmission Date: 20081010
  Serious: Yes (Death, Hospitalization)
  Sender: FDA-Public Use
  Company Number: 2008BI011151

PATIENT
  Age: 38 Year
  Sex: Female

DRUGS (1)
  1. TYSABRI [Suspect]
     Indication: MULTIPLE SCLEROSIS
     Dosage: 300 MG; QM; IV
     Route: 042
     Dates: start: 20080229, end: 20080328

REACTIONS (7)
  - BLINDNESS [None]
  - COGNITIVE DISORDER [None]
  - DISORIENTATION [None]
  - GENERAL PHYSICAL HEALTH DETERIORATION [None]
  - MENTAL STATUS CHANGES [None]
  - PROGRESSIVE MULTIPLE SCLEROSIS [None]
  - UNRESPONSIVE TO STIMULI [None]
